FAERS Safety Report 14252807 (Version 1)
Quarter: 2017Q4

REPORT INFORMATION
  Report Type: Spontaneous
  Country: FR (occurrence: FR)
  Receive Date: 20171206
  Receipt Date: 20171206
  Transmission Date: 20180321
  Serious: Yes (Hospitalization, Other)
  Sender: FDA-Public Use
  Company Number: FR-BRISTOL-MYERS SQUIBB COMPANY-BMS-2017-106961

PATIENT
  Age: 89 Year
  Sex: Female

DRUGS (3)
  1. CORDARONE [Suspect]
     Active Substance: AMIODARONE HYDROCHLORIDE
     Indication: ATRIAL FIBRILLATION
     Dosage: 200 MG, QD
     Route: 048
  2. COUMADINE [Suspect]
     Active Substance: WARFARIN SODIUM
     Indication: ATRIAL FIBRILLATION
     Dosage: UNK
     Route: 048
     Dates: end: 20170828
  3. LOVENOX [Concomitant]
     Active Substance: ENOXAPARIN SODIUM
     Indication: THROMBOSIS PROPHYLAXIS
     Dosage: 2000 IU, UNK
     Route: 058

REACTIONS (9)
  - Device related infection [Unknown]
  - Sepsis [Unknown]
  - Haematoma [Recovered/Resolved]
  - Drug interaction [Unknown]
  - Prothrombin time shortened [Recovered/Resolved]
  - Fracture [Unknown]
  - Osteonecrosis [Unknown]
  - Haemorrhage [Unknown]
  - Coagulation factor decreased [Recovered/Resolved]

NARRATIVE: CASE EVENT DATE: 2017
